FAERS Safety Report 6810321-0 (Version None)
Quarter: 2010Q2

REPORT INFORMATION
  Report Type: 
  Country: None (occurrence: None)
  Receive Date: 20100630
  Receipt Date: 20100624
  Transmission Date: 20101027
  Serious: Yes (Death)
  Sender: FDA-Public Use
  Company Number: PHHY2010MX25788

PATIENT
  Sex: Female

DRUGS (1)
  1. ZOMETA [Suspect]
     Indication: BREAST CANCER
     Dosage: 4 MG/5 ML MONTHLY
     Route: 042
     Dates: start: 20051101, end: 20061001

REACTIONS (1)
  - MALIGNANT NEOPLASM PROGRESSION [None]
